FAERS Safety Report 13244033 (Version 1)
Quarter: 2017Q1

REPORT INFORMATION
  Report Type: Spontaneous
  Country: US (occurrence: US)
  Receive Date: 20170217
  Receipt Date: 20170217
  Transmission Date: 20170428
  Serious: Yes (Hospitalization)
  Sender: FDA-Public Use
  Company Number: None

PATIENT
  Age: 61 Year
  Sex: Female

DRUGS (10)
  1. TIZANIDINE. [Concomitant]
     Active Substance: TIZANIDINE
  2. TRILEPTAL [Concomitant]
     Active Substance: OXCARBAZEPINE
  3. MULTIVIT [Concomitant]
     Active Substance: VITAMINS
  4. AMITRIPTYLIN [Concomitant]
     Active Substance: AMITRIPTYLINE
  5. FLAGYL [Concomitant]
     Active Substance: METRONIDAZOLE\METRONIDAZOLE HYDROCHLORIDE
  6. ZYRTEC [Concomitant]
     Active Substance: CETIRIZINE HYDROCHLORIDE
  7. PREVACID [Concomitant]
     Active Substance: LANSOPRAZOLE
  8. METRONIDAZOLE. [Concomitant]
     Active Substance: METRONIDAZOLE
  9. GILENYA [Suspect]
     Active Substance: FINGOLIMOD HYDROCHLORIDE
     Indication: MULTIPLE SCLEROSIS
     Dosage: 0.5MG CAP 1 CAP QD PO
     Route: 048
     Dates: start: 20160422
  10. CALTRATE [Concomitant]
     Active Substance: CALCIUM CARBONATE

REACTIONS (2)
  - Blood pressure increased [None]
  - Posterior reversible encephalopathy syndrome [None]

NARRATIVE: CASE EVENT DATE: 20170206
